FAERS Safety Report 14569164 (Version 1)
Quarter: 2018Q1

REPORT INFORMATION
  Report Type: Spontaneous
  Country: GB (occurrence: FR)
  Receive Date: 20180223
  Receipt Date: 20180223
  Transmission Date: 20180509
  Serious: Yes (Death, Other)
  Sender: FDA-Public Use
  Company Number: FR-FRESENIUS KABI-FK201802055

PATIENT
  Age: 58 Year
  Sex: Male
  Weight: 54 kg

DRUGS (3)
  1. IRINOTECAN KABI 20 MG/ML, SOLUTION ? DILUER POUR PERFUSION [Suspect]
     Active Substance: IRINOTECAN
     Indication: PANCREATIC CARCINOMA METASTATIC
     Route: 041
     Dates: start: 20170706
  2. OXALIPLATINE ACCORD [Suspect]
     Active Substance: OXALIPLATIN
     Indication: PANCREATIC CARCINOMA METASTATIC
     Route: 041
     Dates: start: 20170706
  3. FLUOROURACILE ACCORD [Suspect]
     Active Substance: FLUOROURACIL
     Indication: PANCREATIC CARCINOMA METASTATIC
     Route: 041
     Dates: start: 20170706

REACTIONS (6)
  - Hypoglycaemia [Unknown]
  - Coma [Unknown]
  - Hypotension [Unknown]
  - Dehydration [Unknown]
  - Vomiting [Unknown]
  - Hepatic failure [Unknown]

NARRATIVE: CASE EVENT DATE: 201707
